FAERS Safety Report 18825359 (Version 2)
Quarter: 2021Q1

REPORT INFORMATION
  Report Type: Report from Study
  Country: US (occurrence: US)
  Receive Date: 20210202
  Receipt Date: 20210304
  Transmission Date: 20210419
  Serious: No
  Sender: FDA-Public Use
  Company Number: US-ASTRAZENECA-2020SF45528

PATIENT
  Age: 900 Month
  Sex: Female

DRUGS (2)
  1. LYNPARZA [Suspect]
     Active Substance: OLAPARIB
     Indication: FALLOPIAN TUBE CANCER
     Route: 048
     Dates: start: 20201009
  2. LYNPARZA [Suspect]
     Active Substance: OLAPARIB
     Indication: FALLOPIAN TUBE CANCER
     Dosage: 150 MG IN AM AND 300 MG IN PM
     Route: 048

REACTIONS (4)
  - Fatigue [Unknown]
  - Hypersomnia [Unknown]
  - Abdominal discomfort [Unknown]
  - Anaemia [Unknown]

NARRATIVE: CASE EVENT DATE: 202102
